FAERS Safety Report 21754744 (Version 1)
Quarter: 2022Q4

REPORT INFORMATION
  Report Type: Spontaneous
  Country: GB (occurrence: GB)
  Receive Date: 20221220
  Receipt Date: 20221220
  Transmission Date: 20230113
  Serious: Yes (Hospitalization, Disabling, Other)
  Sender: FDA-Public Use
  Company Number: GB-MHRA-MED-202212121353297140-RKJFQ

PATIENT
  Age: 56 Year
  Sex: Male
  Weight: 107 kg

DRUGS (2)
  1. AMOXICILLIN\CLAVULANATE POTASSIUM [Suspect]
     Active Substance: AMOXICILLIN\CLAVULANATE POTASSIUM
     Indication: Adverse drug reaction
     Dosage: UNK, TID ( (500/125 3 TIMES A DAY))
     Route: 065
     Dates: start: 20220901, end: 20220906
  2. AMOXICILLIN\CLAVULANATE POTASSIUM [Suspect]
     Active Substance: AMOXICILLIN\CLAVULANATE POTASSIUM
     Indication: Limb injury

REACTIONS (4)
  - Colitis [Not Recovered/Not Resolved]
  - Haematochezia [Recovering/Resolving]
  - Abdominal pain upper [Not Recovered/Not Resolved]
  - Diarrhoea [Not Recovered/Not Resolved]

NARRATIVE: CASE EVENT DATE: 20220909
